FAERS Safety Report 5989308-6 (Version None)
Quarter: 2008Q4

REPORT INFORMATION
  Report Type: 
  Country: None (occurrence: None)
  Receive Date: 20081205
  Receipt Date: 20081117
  Transmission Date: 20090506
  Serious: Yes (Death, Other)
  Sender: FDA-Public Use
  Company Number: 2008S1020675

PATIENT
  Age: 30 Year
  Sex: Female

DRUGS (1)
  1. INDOMETHACIN [Suspect]
     Indication: CHRONIC PAROXYSMAL HEMICRANIA
     Dosage: ORAL
     Route: 048

REACTIONS (3)
  - POEMS SYNDROME [None]
  - VISUAL ACUITY REDUCED [None]
  - VISUAL FIELD DEFECT [None]
